FAERS Safety Report 16194554 (Version 6)
Quarter: 2019Q4

REPORT INFORMATION
  Report Type: Report from Study
  Country: GB (occurrence: GB)
  Receive Date: 20190414
  Receipt Date: 20191114
  Transmission Date: 20200122
  Serious: Yes (Hospitalization, Other)
  Sender: FDA-Public Use
  Company Number: PHHY2019GB084801

PATIENT
  Age: 74 Year
  Sex: Female
  Weight: 80.8 kg

DRUGS (22)
  1. AMITRIPTYLINE [Concomitant]
     Active Substance: AMITRIPTYLINE
     Indication: PRODUCT USED FOR UNKNOWN INDICATION
     Route: 065
  2. UMECLIDINIUM [Concomitant]
     Active Substance: UMECLIDINIUM BROMIDE
     Indication: PRODUCT USED FOR UNKNOWN INDICATION
     Dosage: 1 DF, QD
     Route: 055
  3. VITA POS [Concomitant]
     Active Substance: VITAMIN A PALMITATE
     Indication: PRODUCT USED FOR UNKNOWN INDICATION
     Route: 065
  4. FUROSEMIDE. [Concomitant]
     Active Substance: FUROSEMIDE
     Indication: PRODUCT USED FOR UNKNOWN INDICATION
     Dosage: 20 MG, ALTERNATE DAYS
     Route: 065
  5. BISOPROLOL [Concomitant]
     Active Substance: BISOPROLOL
     Indication: PRODUCT USED FOR UNKNOWN INDICATION
     Dosage: 3.75 MG, QD
     Route: 065
  6. PREGABALIN. [Concomitant]
     Active Substance: PREGABALIN
     Indication: PRODUCT USED FOR UNKNOWN INDICATION
     Dosage: 75 MG, BID
     Route: 048
  7. WARFARIN [Concomitant]
     Active Substance: WARFARIN
     Indication: PRODUCT USED FOR UNKNOWN INDICATION
     Route: 065
  8. FLECAINIDE [Concomitant]
     Active Substance: FLECAINIDE
     Indication: PRODUCT USED FOR UNKNOWN INDICATION
     Dosage: 100 MG, BID
     Route: 065
  9. LATANOPROST. [Concomitant]
     Active Substance: LATANOPROST
     Indication: PRODUCT USED FOR UNKNOWN INDICATION
     Dosage: 1 DROP DAILY
     Route: 065
  10. OXYCODONE [Concomitant]
     Active Substance: OXYCODONE
     Indication: PRODUCT USED FOR UNKNOWN INDICATION
     Dosage: 5 MG, BID
     Route: 048
  11. OXYCODONE [Concomitant]
     Active Substance: OXYCODONE
     Indication: PRODUCT USED FOR UNKNOWN INDICATION
     Dosage: 2.5 MG, Q4H
     Route: 048
  12. ADCAL D3 [Concomitant]
     Active Substance: CALCIUM CARBONATE\CHOLECALCIFEROL
     Indication: PRODUCT USED FOR UNKNOWN INDICATION
     Dosage: UNK, PRN
     Route: 065
  13. FUROSEMIDE. [Concomitant]
     Active Substance: FUROSEMIDE
     Dosage: 120 MG (40 MG IN THE MORNING AND 80 MG AT LUNCH), QD
     Route: 065
  14. APIXABAN [Concomitant]
     Active Substance: APIXABAN
     Indication: ATRIAL FIBRILLATION
     Dosage: 5 MG, QD
     Route: 065
  15. COSENTYX [Suspect]
     Active Substance: SECUKINUMAB
     Dosage: 150 MG, QMO
     Route: 058
     Dates: start: 20190407
  16. MMF [Concomitant]
     Active Substance: MYCOPHENOLATE MOFETIL
     Indication: PRODUCT USED FOR UNKNOWN INDICATION
     Dosage: 1 G, QD
     Route: 065
  17. LOW MOLECULAR WEIGHT HEPARIN [Concomitant]
     Active Substance: UNSPECIFIED INGREDIENT
     Indication: PRODUCT USED FOR UNKNOWN INDICATION
     Dosage: UNK
     Route: 065
     Dates: start: 20190815
  18. DEXAMETHASONE. [Concomitant]
     Active Substance: DEXAMETHASONE
     Indication: PRODUCT USED FOR UNKNOWN INDICATION
     Route: 065
  19. COSENTYX [Suspect]
     Active Substance: SECUKINUMAB
     Dosage: 150 MG, QMO
     Route: 058
     Dates: start: 20190307
  20. COSENTYX [Suspect]
     Active Substance: SECUKINUMAB
     Indication: ANKYLOSING SPONDYLITIS
     Dosage: 150 MG, QW
     Route: 058
     Dates: start: 20171211
  21. PARACETAMOL [Concomitant]
     Active Substance: ACETAMINOPHEN
     Indication: PRODUCT USED FOR UNKNOWN INDICATION
     Dosage: 1000 MG, 4 TIMES DAILY
     Route: 065
  22. TIMOLOL. [Concomitant]
     Active Substance: TIMOLOL
     Indication: PRODUCT USED FOR UNKNOWN INDICATION
     Dosage: ONE APPLICATION DAILY IN RIGHT EYE
     Route: 065

REACTIONS (67)
  - Insomnia [Unknown]
  - Hyperkeratosis [Unknown]
  - Drug ineffective [Recovering/Resolving]
  - Peripheral venous disease [Unknown]
  - Aortic arteriosclerosis [Unknown]
  - Back pain [Unknown]
  - Joint swelling [Unknown]
  - Sleep apnoea syndrome [Unknown]
  - Impaired healing [Unknown]
  - Female genital tract fistula [Unknown]
  - Pulmonary hypertension [Unknown]
  - Fluid overload [Unknown]
  - Peroneal nerve palsy [Unknown]
  - Peripheral pulse decreased [Unknown]
  - Skin exfoliation [Unknown]
  - Mitral valve incompetence [Unknown]
  - Muscular weakness [Unknown]
  - Large intestine perforation [Unknown]
  - Ankylosing spondylitis [Unknown]
  - Skin lesion [Unknown]
  - Oedema peripheral [Unknown]
  - Tricuspid valve incompetence [Unknown]
  - Erythema [Unknown]
  - Vascular stenosis [Unknown]
  - Burning sensation [Unknown]
  - Limb injury [Unknown]
  - Diverticulum intestinal [Unknown]
  - Infection [Unknown]
  - Spinal fracture [Unknown]
  - Peripheral arterial occlusive disease [Unknown]
  - Lumbar radiculopathy [Unknown]
  - Generalised oedema [Recovering/Resolving]
  - Urosepsis [Unknown]
  - Arterial insufficiency [Unknown]
  - Fibromyalgia [Unknown]
  - Muscle discomfort [Unknown]
  - Tremor [Unknown]
  - Muscle twitching [Unknown]
  - Lumbar vertebral fracture [Unknown]
  - Urinary tract infection [Unknown]
  - Pain [Unknown]
  - Cardiac failure [Unknown]
  - Arthralgia [Not Recovered/Not Resolved]
  - Skin ulcer [Unknown]
  - Calcinosis [Unknown]
  - Epicondylitis [Unknown]
  - Asthenia [Unknown]
  - Blister [Unknown]
  - Herpes zoster [Unknown]
  - Paraesthesia [Unknown]
  - Temperature intolerance [Unknown]
  - Dry skin [Unknown]
  - Osteoporosis [Unknown]
  - Thoracic vertebral fracture [Unknown]
  - Peripheral embolism [Unknown]
  - Varicose vein [Unknown]
  - Klebsiella bacteraemia [Unknown]
  - Post herpetic neuralgia [Unknown]
  - Arrhythmia supraventricular [Unknown]
  - Chronic obstructive pulmonary disease [Unknown]
  - Infection [Recovered/Resolved]
  - Pneumonia [Unknown]
  - Ischaemic skin ulcer [Unknown]
  - Musculoskeletal pain [Unknown]
  - Lumbar spinal stenosis [Unknown]
  - Myalgia [Unknown]
  - Fatigue [Unknown]
